FAERS Safety Report 25660719 (Version 2)
Quarter: 2025Q3

REPORT INFORMATION
  Report Type: Spontaneous
  Country: CN (occurrence: CN)
  Receive Date: 20250808
  Receipt Date: 20250821
  Transmission Date: 20251021
  Serious: Yes (Hospitalization)
  Sender: BAUSCH AND LOMB
  Company Number: CN-BAUSCH-BH-2025-015891

PATIENT
  Age: 51 Year
  Sex: Female

DRUGS (2)
  1. DEXAMETHASONE [Suspect]
     Active Substance: DEXAMETHASONE
     Indication: Diabetic foot
     Route: 042
  2. LEVOFLOXACIN [Suspect]
     Active Substance: LEVOFLOXACIN
     Indication: Diabetic foot
     Route: 042

REACTIONS (1)
  - Generalised pustular psoriasis [Recovered/Resolved]
